FAERS Safety Report 14932029 (Version 1)
Quarter: 2018Q2

REPORT INFORMATION
  Report Type: Spontaneous
  Country: US (occurrence: US)
  Receive Date: 20180524
  Receipt Date: 20180524
  Transmission Date: 20180711
  Serious: No
  Sender: FDA-Public Use
  Company Number: US-ASTRAZENECA-2018SE55903

PATIENT
  Age: 24798 Day
  Sex: Female
  Weight: 112 kg

DRUGS (1)
  1. BYDUREON BCISE [Suspect]
     Active Substance: EXENATIDE
     Indication: TYPE 2 DIABETES MELLITUS
     Route: 058
     Dates: start: 20180424

REACTIONS (2)
  - Glycosylated haemoglobin decreased [Unknown]
  - Underdose [Unknown]

NARRATIVE: CASE EVENT DATE: 20180424
